FAERS Safety Report 11593682 (Version 1)
Quarter: 2015Q4

REPORT INFORMATION
  Report Type: Report from Study
  Country: IN (occurrence: IN)
  Receive Date: 20151005
  Receipt Date: 20151005
  Transmission Date: 20160304
  Serious: Yes (Death, Other)
  Sender: FDA-Public Use
  Company Number: IN-GLAXOSMITHKLINE-IN2015GSK140496

PATIENT
  Age: 32 Year
  Sex: Female

DRUGS (1)
  1. TYKERB [Suspect]
     Active Substance: LAPATINIB DITOSYLATE
     Indication: BREAST CANCER METASTATIC
     Dosage: 250 MG, 4 TABLETS
     Route: 048
     Dates: start: 20141001

REACTIONS (2)
  - Myocardial infarction [Fatal]
  - Metastases to liver [Unknown]
